FAERS Safety Report 20997490 (Version 3)
Quarter: 2022Q3

REPORT INFORMATION
  Report Type: Spontaneous
  Country: US (occurrence: US)
  Receive Date: 20220623
  Receipt Date: 20220718
  Transmission Date: 20221027
  Serious: No
  Sender: FDA-Public Use
  Company Number: US-BRISTOL-MYERS SQUIBB COMPANY-2022-060496

PATIENT
  Age: 23 Year
  Sex: Female

DRUGS (1)
  1. ORENCIA [Suspect]
     Active Substance: ABATACEPT
     Indication: Product used for unknown indication
     Dosage: BATCH NUMBER: ABV5534, EXPIRE DATE: JAN-2024
     Route: 042

REACTIONS (2)
  - Product preparation error [Unknown]
  - Poor quality product administered [Unknown]
